FAERS Safety Report 4322248-7 (Version None)
Quarter: 2004Q1

REPORT INFORMATION
  Report Type: 
  Country: None (occurrence: None)
  Receive Date: 20040323
  Receipt Date: 20040316
  Transmission Date: 20041129
  Serious: Yes (Hospitalization)
  Sender: FDA-Public Use
  Company Number: 04-03-0385

PATIENT
  Age: 74 Year
  Sex: Female

DRUGS (3)
  1. METRONIDAZOLE [Suspect]
     Indication: FEMALE GENITAL-DIGESTIVE TRACT FISTULA
     Dosage: 1000MG/D ORAL
     Route: 048
  2. MESALAMINE [Concomitant]
  3. CIPROFLOXACIN HYDROCHLORIDE [Concomitant]

REACTIONS (11)
  - BALANCE DISORDER [None]
  - CEREBELLAR SYNDROME [None]
  - COGWHEEL RIGIDITY [None]
  - DIFFICULTY IN WALKING [None]
  - DYSARTHRIA [None]
  - DYSPHAGIA [None]
  - DYSSTASIA [None]
  - NUCLEAR MAGNETIC RESONANCE IMAGING BRAIN ABNORMAL [None]
  - NYSTAGMUS [None]
  - TOXIC INDUCED ENCEPHALOPATHY [None]
  - VITAMIN B12 DECREASED [None]
